FAERS Safety Report 9169136 (Version 2)
Quarter: 2013Q2

REPORT INFORMATION
  Report Type: Spontaneous
  Country: CN (occurrence: CN)
  Receive Date: 20130318
  Receipt Date: 20130409
  Transmission Date: 20140414
  Serious: Yes (Hospitalization)
  Sender: FDA-Public Use
  Company Number: CN-GLAXOSMITHKLINE-B0874926A

PATIENT
  Age: 57 Year
  Sex: Male

DRUGS (4)
  1. SEROXAT [Suspect]
     Indication: DIZZINESS
     Dosage: 10MG PER DAY
     Route: 048
     Dates: start: 20130228, end: 20130314
  2. SEROXAT [Suspect]
     Indication: DIZZINESS
     Dosage: 20MG PER DAY
     Route: 048
     Dates: end: 20130227
  3. SEROXAT [Suspect]
     Indication: DIZZINESS
     Dosage: 10MG PER DAY
     Route: 048
     Dates: start: 20130220
  4. CLONAZEPAM [Concomitant]
     Indication: PRODUCT USED FOR UNKNOWN INDICATION
     Route: 065
     Dates: start: 20130220, end: 20130314

REACTIONS (3)
  - Ventricular tachycardia [Recovered/Resolved]
  - Hyperhidrosis [Recovered/Resolved]
  - Agitation [Recovered/Resolved]
